FAERS Safety Report 4731771-2 (Version None)
Quarter: 2005Q3

REPORT INFORMATION
  Report Type: 
  Country: None (occurrence: None)
  Receive Date: 20050725
  Receipt Date: 20040602
  Transmission Date: 20060218
  Serious: Yes (Life-Threatening, Hospitalization)
  Sender: FDA-Public Use
  Company Number: WAES 0405USA00539

PATIENT
  Age: 70 Year
  Sex: Male
  Weight: 74.8435 kg

DRUGS (7)
  1. VIOXX [Suspect]
     Indication: ARTHRALGIA
     Dosage: SEE IMAGE
     Route: 048
     Dates: start: 20040401, end: 20040410
  2. VIOXX [Suspect]
     Indication: PELVIC PAIN
     Dosage: SEE IMAGE
     Route: 048
     Dates: start: 20040401, end: 20040410
  3. VIOXX [Suspect]
     Indication: ARTHRALGIA
     Dosage: SEE IMAGE
     Route: 048
     Dates: start: 20040411, end: 20040412
  4. VIOXX [Suspect]
     Indication: PELVIC PAIN
     Dosage: SEE IMAGE
     Route: 048
     Dates: start: 20040411, end: 20040412
  5. GLUCOPHAGE [Concomitant]
  6. TOFRANIL [Concomitant]
  7. VALIUM [Concomitant]

REACTIONS (5)
  - BLOOD GLUCOSE INCREASED [None]
  - LIVER FUNCTION TEST ABNORMAL [None]
  - MONOCLONAL IMMUNOGLOBULIN PRESENT [None]
  - MYALGIA [None]
  - THROMBOCYTOPENIA [None]
